FAERS Safety Report 8689827 (Version 2)
Quarter: 2013Q3

REPORT INFORMATION
  Report Type: Spontaneous
  Country: US (occurrence: US)
  Receive Date: 20120727
  Receipt Date: 20130903
  Transmission Date: 20140515
  Serious: No
  Sender: FDA-Public Use
  Company Number: US-ASTRAZENECA-2012SE03299

PATIENT
  Age: 59 Year
  Sex: Female
  Weight: 95.3 kg

DRUGS (18)
  1. LEVOTHYROXINE [Concomitant]
     Indication: HYPOTHYROIDISM
  2. PROPRANOLOL [Concomitant]
     Indication: MIGRAINE
  3. VENLAFAXINE XR [Concomitant]
     Indication: DEPRESSION
  4. SEROQUEL [Suspect]
     Indication: BIPOLAR II DISORDER
     Dosage: 300 MG IN THE MORNING AND 600MG AT NIGHT
     Route: 048
  5. SEROQUEL [Suspect]
     Indication: AFFECTIVE DISORDER
     Dosage: 300 MG IN THE MORNING AND 600MG AT NIGHT
     Route: 048
  6. SEROQUEL [Suspect]
     Indication: SLEEP DISORDER THERAPY
     Dosage: 300 MG IN THE MORNING AND 600MG AT NIGHT
     Route: 048
  7. SEROQUEL [Suspect]
     Indication: SLEEP TERROR
     Dosage: 300 MG IN THE MORNING AND 600MG AT NIGHT
     Route: 048
  8. SEROQUEL [Suspect]
     Indication: BIPOLAR II DISORDER
     Route: 048
  9. SEROQUEL [Suspect]
     Indication: AFFECTIVE DISORDER
     Route: 048
  10. SEROQUEL [Suspect]
     Indication: SLEEP DISORDER THERAPY
     Route: 048
  11. SEROQUEL [Suspect]
     Indication: SLEEP TERROR
     Route: 048
  12. SEROQUEL [Suspect]
     Indication: BIPOLAR II DISORDER
     Route: 048
     Dates: start: 20130709
  13. SEROQUEL [Suspect]
     Indication: AFFECTIVE DISORDER
     Route: 048
     Dates: start: 20130709
  14. SEROQUEL [Suspect]
     Indication: SLEEP DISORDER THERAPY
     Route: 048
     Dates: start: 20130709
  15. SEROQUEL [Suspect]
     Indication: SLEEP TERROR
     Route: 048
     Dates: start: 20130709
  16. LISINOPRIL [Suspect]
     Indication: HYPERTENSION
     Route: 048
     Dates: start: 2006
  17. LISINOPRIL [Suspect]
     Indication: HYPERTENSION
     Route: 048
  18. AMLODIPINE [Concomitant]
     Indication: HYPERTENSION

REACTIONS (18)
  - Multiple sclerosis [Unknown]
  - Mental impairment [Unknown]
  - Hypoaesthesia [Unknown]
  - Discomfort [Unknown]
  - Headache [Unknown]
  - Circadian rhythm sleep disorder [Unknown]
  - Anxiety [Unknown]
  - Insomnia [Unknown]
  - Weight decreased [Unknown]
  - Photopsia [Unknown]
  - Visual acuity reduced [Unknown]
  - Migraine [Unknown]
  - Hypertension [Unknown]
  - Hypothyroidism [Unknown]
  - Therapeutic response unexpected [Unknown]
  - Palpitations [Unknown]
  - Drug ineffective [Unknown]
  - Intentional drug misuse [Unknown]
